FAERS Safety Report 5722021-9 (Version None)
Quarter: 2008Q2

REPORT INFORMATION
  Report Type: 
  Country: None (occurrence: None)
  Receive Date: 20080429
  Receipt Date: 20080421
  Transmission Date: 20081010
  Serious: No
  Sender: FDA-Public Use
  Company Number: JP-BRISTOL-MYERS SQUIBB COMPANY-14111934

PATIENT
  Age: 67 Year
  Sex: Female

DRUGS (4)
  1. ABILIFY [Suspect]
     Indication: SCHIZOPHRENIA
     Route: 048
     Dates: start: 20080204, end: 20080307
  2. FLUNITRAZEPAM [Concomitant]
     Route: 048
     Dates: start: 20080204
  3. HALOPERIDOL [Concomitant]
     Dosage: INJECTION:20FEB08-26FEB08
     Route: 048
     Dates: start: 20080221
  4. CHLORPROMAZINE + PROMETHAZINE [Concomitant]
     Route: 048
     Dates: start: 20070128

REACTIONS (1)
  - INSOMNIA [None]
